FAERS Safety Report 8237772-4 (Version None)
Quarter: 2012Q1

REPORT INFORMATION
  Report Type: 
  Country: None (occurrence: None)
  Receive Date: 20120326
  Receipt Date: 20120312
  Transmission Date: 20120608
  Serious: Yes (Death, Disabling, Other)
  Sender: FDA-Public Use
  Company Number: 2008AL010864

PATIENT
  Age: 62 Year
  Sex: Male

DRUGS (14)
  1. ASPIRIN [Concomitant]
  2. LASIX [Concomitant]
  3. COREG [Concomitant]
  4. IRON SULFATETHIAMIN COMPOUND TAB [Concomitant]
  5. POTASSIUM CHLORIDE [Concomitant]
  6. ALTACE [Concomitant]
  7. PROTONIX [Concomitant]
  8. ALDACTONE [Concomitant]
  9. ZANTAC [Concomitant]
  10. DIGOXIN [Suspect]
     Indication: CARDIOMYOPATHY
     Dosage: 0.125 MG;QD;PO
     Route: 048
     Dates: start: 20070501, end: 20080425
  11. DIGOXIN [Suspect]
     Indication: CORONARY ARTERY BYPASS
     Dosage: 0.125 MG;QD;PO
     Route: 048
     Dates: start: 20070501, end: 20080425
  12. MULTI-VITAMIN [Concomitant]
  13. METOLAZONE [Concomitant]
  14. LISINOPRIL [Concomitant]

REACTIONS (17)
  - CARDIAC FAILURE CONGESTIVE [None]
  - HEPATIC STEATOSIS [None]
  - ISCHAEMIC CARDIOMYOPATHY [None]
  - BLOOD CHOLESTEROL INCREASED [None]
  - ASCITES [None]
  - MUSCULOSKELETAL PAIN [None]
  - MULTIPLE INJURIES [None]
  - MYOCARDIAL INFARCTION [None]
  - ANXIETY [None]
  - TRANSIENT ISCHAEMIC ATTACK [None]
  - ARTERIOSCLEROSIS CORONARY ARTERY [None]
  - ECONOMIC PROBLEM [None]
  - PAIN [None]
  - HYPERTENSION [None]
  - RENAL DISORDER [None]
  - HYDROCELE [None]
  - ANAEMIA [None]
